FAERS Safety Report 25644912 (Version 1)
Quarter: 2025Q3

REPORT INFORMATION
  Report Type: Spontaneous
  Country: US (occurrence: US)
  Receive Date: 20250805
  Receipt Date: 20250805
  Transmission Date: 20251020
  Serious: No
  Sender: SANOFI AVENTIS
  Company Number: US-SA-2025SA227750

PATIENT
  Age: 42 Year
  Sex: Male

DRUGS (2)
  1. DUPIXENT [Suspect]
     Active Substance: DUPILUMAB
     Indication: Dermatitis atopic
     Route: 058
     Dates: start: 20250405, end: 20250405
  2. DUPIXENT [Suspect]
     Active Substance: DUPILUMAB
     Dosage: 300 MG, QOW
     Route: 058
     Dates: start: 202504

REACTIONS (7)
  - COVID-19 [Recovering/Resolving]
  - Upper-airway cough syndrome [Recovering/Resolving]
  - Cough [Recovering/Resolving]
  - Dyspnoea [Recovering/Resolving]
  - Asthenia [Recovering/Resolving]
  - Dermatitis contact [Recovered/Resolved]
  - Condition aggravated [Recovered/Resolved]

NARRATIVE: CASE EVENT DATE: 20250701
